FAERS Safety Report 5492276-7 (Version None)
Quarter: 2007Q4

REPORT INFORMATION
  Report Type: 
  Country: None (occurrence: None)
  Receive Date: 20071015
  Receipt Date: 20070712
  Transmission Date: 20080405
  Serious: No
  Sender: FDA-Public Use
  Company Number: 2007SP002536

PATIENT
  Age: 65 Year
  Sex: Male
  Weight: 106.5953 kg

DRUGS (9)
  1. LUNESTA [Suspect]
     Indication: INSOMNIA
     Dosage: 3 MG;HS;ORAL   2 MG;HS;ORAL
     Route: 048
     Dates: start: 20070601, end: 20070712
  2. LUNESTA [Suspect]
     Indication: INSOMNIA
     Dosage: 3 MG;HS;ORAL   2 MG;HS;ORAL
     Route: 048
     Dates: start: 20070713
  3. LEXAPRO [Concomitant]
  4. PROCARDIA XL [Concomitant]
  5. VASOTEC [Concomitant]
  6. MAXZIDE [Concomitant]
  7. ZETIA [Concomitant]
  8. ECOTRIN [Concomitant]
  9. METOPROLOL [Concomitant]

REACTIONS (2)
  - DEPRESSED MOOD [None]
  - SOMNOLENCE [None]
